FAERS Safety Report 7579361-0 (Version None)
Quarter: 2011Q2

REPORT INFORMATION
  Report Type: 
  Country: None (occurrence: None)
  Receive Date: 20110628
  Receipt Date: 20110617
  Transmission Date: 20111010
  Serious: Yes (Other)
  Sender: FDA-Public Use
  Company Number: US-RB-025764-11

PATIENT
  Age: 58 Year
  Sex: Female

DRUGS (2)
  1. SUBOXONE [Suspect]
     Dosage: UNKNOWN DOSING DETAILS
     Route: 065
  2. SUBOXONE [Suspect]
     Indication: PRODUCT USED FOR UNKNOWN INDICATION
     Dosage: SUBLINGUAL FILM; DOSING INFORMATION UNKNOWN
     Route: 065

REACTIONS (7)
  - VISUAL IMPAIRMENT [None]
  - OEDEMA PERIPHERAL [None]
  - LOSS OF CONSCIOUSNESS [None]
  - CONFUSIONAL STATE [None]
  - TOOTH INFECTION [None]
  - RASH [None]
  - INCOHERENT [None]
